FAERS Safety Report 7521550-5 (Version None)
Quarter: 2011Q2

REPORT INFORMATION
  Report Type: 
  Country: None (occurrence: None)
  Receive Date: 20110603
  Receipt Date: 20110601
  Transmission Date: 20111010
  Serious: No
  Sender: FDA-Public Use
  Company Number: US-PFIZER INC-2011119399

PATIENT
  Sex: Male
  Weight: 91 kg

DRUGS (2)
  1. LYRICA [Suspect]
     Indication: NEURALGIA
     Dosage: 75 MG, 2X/DAY
     Route: 048
     Dates: start: 20110428, end: 20110525
  2. LYRICA [Suspect]
     Indication: HYPOAESTHESIA

REACTIONS (3)
  - NEURALGIA [None]
  - ALOPECIA [None]
  - HYPOAESTHESIA [None]
